FAERS Safety Report 8882982 (Version 2)
Quarter: 2013Q2

REPORT INFORMATION
  Report Type: Report from Study
  Country: JP (occurrence: JP)
  Receive Date: 20121102
  Receipt Date: 20130502
  Transmission Date: 20140414
  Serious: Yes (Other)
  Sender: FDA-Public Use
  Company Number: JP-VERTEX PHARMACEUTICAL INC.-2012-023872

PATIENT
  Age: 63 Year
  Sex: Male

DRUGS (10)
  1. VX-950 (TELAPREVIR) [Suspect]
     Indication: CHRONIC HEPATITIS C
     Dosage: 2250 MG, QD
     Route: 048
     Dates: start: 20120725, end: 20121016
  2. REBETOL [Suspect]
     Indication: CHRONIC HEPATITIS C
     Dosage: 800 MG, QD
     Route: 048
     Dates: start: 20120725, end: 20120903
  3. REBETOL [Suspect]
     Dosage: 600 MG, QD
     Route: 048
     Dates: start: 20120904, end: 20120917
  4. REBETOL [Suspect]
     Dosage: 400 MG, QD
     Route: 048
     Dates: start: 20120918, end: 20120924
  5. REBETOL [Suspect]
     Dosage: 200 MG, QD
     Route: 048
     Dates: start: 20120925
  6. PEGINTERFERON ALFA-2B [Concomitant]
     Dosage: 1.5 ?G/KG, QW
     Route: 058
     Dates: start: 20120725
  7. GLYCORAN [Concomitant]
     Dosage: 250 MG, QD
     Route: 048
  8. AMLODIPINE [Concomitant]
     Dosage: 5.0 MG, QD
     Route: 048
  9. HUMALOG MIX [Concomitant]
     Dosage: 20 DF, QD
     Route: 058
  10. URSO [Concomitant]
     Dosage: 900 MG, QD
     Route: 048

REACTIONS (1)
  - Skin exfoliation [Recovered/Resolved]
